FAERS Safety Report 21881633 (Version 1)
Quarter: 2023Q1

REPORT INFORMATION
  Report Type: Spontaneous
  Country: US (occurrence: US)
  Receive Date: 20230119
  Receipt Date: 20230119
  Transmission Date: 20230417
  Serious: No
  Sender: FDA-Public Use
  Company Number: US-GSK-US2023AMR002408

PATIENT
  Age: 78 Year
  Sex: Female

DRUGS (8)
  1. NUCALA [Suspect]
     Active Substance: MEPOLIZUMAB
     Indication: Asthma
     Dosage: UNK
  2. ASPIRIN [Suspect]
     Active Substance: ASPIRIN
     Indication: Blood pressure measurement
     Dosage: UNK
  3. FULVESTRANT [Suspect]
     Active Substance: FULVESTRANT
     Indication: Neoplasm
     Dosage: UNK
  4. LETROZOLE [Suspect]
     Active Substance: LETROZOLE
     Indication: Product used for unknown indication
     Dosage: UNK
  5. IBRANCE [Suspect]
     Active Substance: PALBOCICLIB
     Indication: Product used for unknown indication
     Dosage: UNK
  6. VERZENIO [Suspect]
     Active Substance: ABEMACICLIB
     Indication: Asthma
     Dosage: UNK
  7. ANASTROZOLE [Suspect]
     Active Substance: ANASTROZOLE
     Indication: Aromatase inhibition therapy
     Dosage: UNK
  8. ANASTROZOLE [Suspect]
     Active Substance: ANASTROZOLE
     Indication: Blood pressure measurement

REACTIONS (6)
  - Cough [Unknown]
  - Dyspnoea [Unknown]
  - Abdominal pain upper [Unknown]
  - Diarrhoea [Unknown]
  - Lung disorder [Unknown]
  - Vomiting [Unknown]
